FAERS Safety Report 6717462-7 (Version None)
Quarter: 2010Q2

REPORT INFORMATION
  Report Type: 
  Country: None (occurrence: None)
  Receive Date: 20100510
  Receipt Date: 20100429
  Transmission Date: 20101027
  Serious: Yes (Death)
  Sender: FDA-Public Use
  Company Number: SE-ROCHE-700839

PATIENT
  Sex: Female

DRUGS (4)
  1. XELODA [Suspect]
     Indication: BREAST CANCER
     Route: 065
  2. TAXOTERE [Concomitant]
     Indication: BREAST CANCER
  3. EPIRUBICIN [Concomitant]
     Indication: BREAST CANCER
  4. CYCLOPHOSPHAMIDE [Concomitant]
     Indication: BREAST CANCER

REACTIONS (1)
  - SEPSIS [None]
